FAERS Safety Report 5282295-8 (Version None)
Quarter: 2007Q1

REPORT INFORMATION
  Report Type: 
  Country: None (occurrence: None)
  Receive Date: 20070331
  Receipt Date: 20070320
  Transmission Date: 20070707
  Serious: Yes (Hospitalization)
  Sender: FDA-Public Use
  Company Number: BE-PFIZER INC-2007023628

PATIENT

DRUGS (3)
  1. SUTENT [Suspect]
     Indication: RENAL CANCER METASTATIC
     Dates: start: 20061107, end: 20070221
  2. XANAX [Concomitant]
     Route: 048
  3. OMEPRAZOLE [Concomitant]
     Dosage: TEXT:20
     Route: 048

REACTIONS (9)
  - ANAL FISSURE [None]
  - CONFUSIONAL STATE [None]
  - DISORIENTATION [None]
  - FLATULENCE [None]
  - HALLUCINATION [None]
  - MENINGITIS [None]
  - METASTASES TO CENTRAL NERVOUS SYSTEM [None]
  - MOVEMENT DISORDER [None]
  - PROCTALGIA [None]
